FAERS Safety Report 14999519 (Version 1)
Quarter: 2018Q2

REPORT INFORMATION
  Report Type: Spontaneous
  Country: GB (occurrence: GB)
  Receive Date: 20180612
  Receipt Date: 20180612
  Transmission Date: 20180711
  Serious: Yes (Other)
  Sender: FDA-Public Use
  Company Number: GB-ACCORD-068067

PATIENT
  Age: 59 Year
  Sex: Male

DRUGS (2)
  1. PEMETREXED ACTAVIS [Suspect]
     Active Substance: PEMETREXED
     Indication: PRODUCT USED FOR UNKNOWN INDICATION
     Dosage: ONCE IN 3 WEEKS FOR 8 MONTHS
     Dates: start: 201612
  2. CISPLATIN. [Suspect]
     Active Substance: CISPLATIN
     Indication: PLEURAL MESOTHELIOMA
     Dosage: DOSE: 1 (UNIT UNSPECIFIED)

REACTIONS (3)
  - Drug hypersensitivity [Unknown]
  - Lymphangiosis carcinomatosa [Unknown]
  - Malignant neoplasm progression [Unknown]

NARRATIVE: CASE EVENT DATE: 201705
